FAERS Safety Report 8847265 (Version 2)
Quarter: 2014Q3

REPORT INFORMATION
  Report Type: Spontaneous
  Country: US (occurrence: US)
  Receive Date: 20121018
  Receipt Date: 20140827
  Transmission Date: 20150326
  Serious: Yes (Hospitalization, Disabling, Other)
  Sender: FDA-Public Use
  Company Number: US-009507513-2012SP035543

PATIENT
  Sex: Female
  Weight: 77.98 kg

DRUGS (2)
  1. NUVARING [Suspect]
     Active Substance: ETHINYL ESTRADIOL\ETONOGESTREL
     Indication: CONTRACEPTION
     Dosage: UNK
     Route: 067
     Dates: start: 20060509, end: 20060626
  2. XANAX [Concomitant]
     Active Substance: ALPRAZOLAM
     Dosage: 0.25 MG, PRN

REACTIONS (15)
  - Depression [Not Recovered/Not Resolved]
  - Sinus bradycardia [Unknown]
  - Anxiety [Not Recovered/Not Resolved]
  - Maternal exposure before pregnancy [Unknown]
  - Adjustment disorder [Unknown]
  - Arrhythmia [Unknown]
  - Nightmare [Unknown]
  - Homicide [Unknown]
  - Abortion spontaneous [Unknown]
  - Pulmonary embolism [Unknown]
  - Pulmonary mass [Unknown]
  - Poor quality sleep [Unknown]
  - Back pain [Unknown]
  - Vaginal haemorrhage [Unknown]
  - Syncope [Recovered/Resolved]

NARRATIVE: CASE EVENT DATE: 20060510
